FAERS Safety Report 19936310 (Version 1)
Quarter: 2021Q4

REPORT INFORMATION
  Report Type: Report from Study
  Country: None (occurrence: US)
  Receive Date: 20211008
  Receipt Date: 20211008
  Transmission Date: 20220303
  Serious: Yes (Hospitalization)
  Sender: FDA-Public Use
  Company Number: US-ZOGENIX INTERNATIONAL LIMITED, A WHOLLY OWNED SUBSIDIARY OF ZOGENIX, INC.-2021ZX000719

PATIENT
  Age: 10 Year
  Sex: Male

DRUGS (10)
  1. FINTEPLA [Suspect]
     Active Substance: FENFLURAMINE
     Indication: Severe myoclonic epilepsy of infancy
     Route: 048
     Dates: start: 20210809, end: 202108
  2. FINTEPLA [Suspect]
     Active Substance: FENFLURAMINE
     Route: 048
     Dates: start: 202108, end: 20210829
  3. FINTEPLA [Suspect]
     Active Substance: FENFLURAMINE
     Dosage: TO BE DISCONTINUED
     Route: 048
     Dates: start: 20210829
  4. DIACOMIT [Concomitant]
     Active Substance: STIRIPENTOL
     Indication: Product used for unknown indication
     Dosage: TO BE RESTARTED
     Route: 065
     Dates: end: 202109
  5. VITAMIN C [Concomitant]
     Active Substance: ASCORBIC ACID
     Indication: Product used for unknown indication
     Route: 065
  6. Flintstone vitamins [Concomitant]
     Indication: Product used for unknown indication
     Route: 065
  7. NAYZILAM [Concomitant]
     Active Substance: MIDAZOLAM
     Indication: Product used for unknown indication
     Route: 065
  8. ONFI [Concomitant]
     Active Substance: CLOBAZAM
     Indication: Product used for unknown indication
     Route: 065
  9. DEPAKOTE [Concomitant]
     Active Substance: DIVALPROEX SODIUM
     Indication: Product used for unknown indication
     Route: 065
  10. Children^s MVI [Concomitant]
     Indication: Product used for unknown indication

REACTIONS (3)
  - Dyskinesia [Unknown]
  - Seizure [Unknown]
  - Somnolence [Unknown]

NARRATIVE: CASE EVENT DATE: 20210818
